FAERS Safety Report 5927537-8 (Version None)
Quarter: 2008Q4

REPORT INFORMATION
  Report Type: 
  Country: None (occurrence: None)
  Receive Date: 20081021
  Receipt Date: 20081021
  Transmission Date: 20090506
  Serious: Yes (Other)
  Sender: FDA-Public Use
  Company Number: None

PATIENT
  Age: 83 Year
  Sex: Female
  Weight: 50 kg

DRUGS (1)
  1. AVELOX [Suspect]
     Indication: SEPSIS
     Dosage: 400 MG EVERY 24 HOURS PO
     Route: 048

REACTIONS (7)
  - ABDOMINAL PAIN [None]
  - CLOSTRIDIAL INFECTION [None]
  - DIARRHOEA [None]
  - HYPOVOLAEMIC SHOCK [None]
  - OCCULT BLOOD POSITIVE [None]
  - PYREXIA [None]
  - WHITE BLOOD CELL COUNT INCREASED [None]
